FAERS Safety Report 8265423-1 (Version None)
Quarter: 2012Q2

REPORT INFORMATION
  Report Type: 
  Country: None (occurrence: None)
  Receive Date: 20120406
  Receipt Date: 20120403
  Transmission Date: 20120825
  Serious: Yes (Disabling, Other)
  Sender: FDA-Public Use
  Company Number: AU-PFIZER INC-2012054336

PATIENT
  Age: 75 Year
  Sex: Male

DRUGS (4)
  1. CADUET [Suspect]
     Indication: HYPERCHOLESTEROLAEMIA
  2. MICARDIS [Concomitant]
     Indication: HYPERTENSION
     Dosage: 40 MG, 1X/DAY
     Route: 048
     Dates: end: 20111201
  3. CADUET [Suspect]
     Indication: HYPERTENSION
     Dosage: AMLODIPINE 5 MG/ATORVASTATIN 20 MG, 1X/DAY
     Route: 048
     Dates: start: 20100101, end: 20120228
  4. AMLODIPINE BESYLATE [Suspect]

REACTIONS (2)
  - PHOTODERMATOSIS [None]
  - PRURITUS [None]
